FAERS Safety Report 8062651-5 (Version None)
Quarter: 2012Q1

REPORT INFORMATION
  Report Type: 
  Country: None (occurrence: None)
  Receive Date: 20120123
  Receipt Date: 20120113
  Transmission Date: 20120608
  Serious: Yes (Hospitalization, Other)
  Sender: FDA-Public Use
  Company Number: JP-ASTELLAS-2012US000506

PATIENT
  Sex: Male
  Weight: 92 kg

DRUGS (8)
  1. GEMCITABINE [Concomitant]
     Indication: PANCREATIC CARCINOMA
     Dosage: 1000 MG/M2, UID/QD
     Route: 041
     Dates: start: 20111205, end: 20111205
  2. MOHRUS YUTOKU [Concomitant]
     Indication: PRODUCT USED FOR UNKNOWN INDICATION
     Dosage: 40 MG, TOTAL DOSE
     Route: 062
  3. RABEPRAZOLE SODIUM [Concomitant]
     Indication: PRODUCT USED FOR UNKNOWN INDICATION
     Dosage: 10 MG, UID/QD
     Route: 048
  4. FAMOTIDINE [Concomitant]
     Indication: PRODUCT USED FOR UNKNOWN INDICATION
     Dosage: 40 MG, UID/QD
     Route: 048
     Dates: start: 20111205, end: 20111208
  5. MUCOSTA [Concomitant]
     Indication: PRODUCT USED FOR UNKNOWN INDICATION
     Dosage: 300 MG, UID/QD
     Route: 048
     Dates: start: 20111205, end: 20111208
  6. FENTORA [Concomitant]
     Indication: PRODUCT USED FOR UNKNOWN INDICATION
     Dosage: 2 MG, UID/QD
     Route: 062
  7. ERLOTINIB HYDROCHLORIDE [Suspect]
     Indication: PANCREATIC CARCINOMA
     Dosage: 100 MG, UID/QD
     Route: 048
     Dates: start: 20111205, end: 20111208
  8. AMOBAN [Concomitant]
     Indication: PRODUCT USED FOR UNKNOWN INDICATION
     Dosage: 7.5 MG, TOTAL DOSE
     Route: 048

REACTIONS (3)
  - DEPRESSED LEVEL OF CONSCIOUSNESS [None]
  - GASTROINTESTINAL HAEMORRHAGE [None]
  - BLOOD PRESSURE DECREASED [None]
